FAERS Safety Report 6468474-2 (Version None)
Quarter: 2009Q4

REPORT INFORMATION
  Report Type: 
  Country: None (occurrence: None)
  Receive Date: 20091202
  Receipt Date: 20091202
  Transmission Date: 20100525
  Serious: Yes (Other)
  Sender: FDA-Public Use
  Company Number: None

PATIENT
  Sex: Female
  Weight: 59.4212 kg

DRUGS (2)
  1. RIFAMPIN [Suspect]
     Indication: BRUCELLOSIS
     Dosage: 1 TABLET 2X/ DIEM ORAL
     Route: 048
     Dates: start: 20090325, end: 20090414
  2. DOXYCYCLINE [Suspect]
     Dosage: 1 TABLET 2X/ DIEM ORAL
     Route: 048

REACTIONS (7)
  - FATIGUE [None]
  - MALAISE [None]
  - MUSCULOSKELETAL DISORDER [None]
  - MUSCULOSKELETAL STIFFNESS [None]
  - MYALGIA [None]
  - PAIN OF SKIN [None]
  - RASH [None]
